FAERS Safety Report 21573788 (Version 1)
Quarter: 2022Q4

REPORT INFORMATION
  Report Type: Spontaneous
  Country: US (occurrence: US)
  Receive Date: 20221109
  Receipt Date: 20221109
  Transmission Date: 20230113
  Serious: Yes (Other)
  Sender: FDA-Public Use
  Company Number: US-MYLANLABS-2022M1120651

PATIENT
  Sex: Female

DRUGS (2)
  1. CELEBREX [Suspect]
     Active Substance: CELECOXIB
     Indication: Arthritis
     Dosage: 100 MILLIGRAM, BID (100 MG BID X 3 YR)
     Route: 065
  2. PFIZER-BIONTECH COVID-19 VACCINE [Suspect]
     Active Substance: TOZINAMERAN
     Indication: Product used for unknown indication
     Dosage: UNK (STOP DATE: AFTER 3 DOSES)
     Route: 065
     Dates: start: 20221013

REACTIONS (2)
  - Croup infectious [Recovering/Resolving]
  - Productive cough [Recovering/Resolving]
